FAERS Safety Report 14453898 (Version 1)
Quarter: 2018Q1

REPORT INFORMATION
  Report Type: Spontaneous
  Country: US (occurrence: US)
  Receive Date: 20180129
  Receipt Date: 20180129
  Transmission Date: 20180509
  Serious: No
  Sender: FDA-Public Use
  Company Number: US-PFIZER INC-2018036964

PATIENT
  Age: 65 Year
  Sex: Male
  Weight: 67.13 kg

DRUGS (2)
  1. GABAPENTIN. [Suspect]
     Active Substance: GABAPENTIN
     Dosage: 1 DF, 3X/DAY
     Dates: start: 20180109
  2. GABAPENTIN. [Suspect]
     Active Substance: GABAPENTIN
     Indication: NEUROPATHY PERIPHERAL
     Dosage: UNK
     Dates: start: 2017

REACTIONS (6)
  - Asthenia [Unknown]
  - Palpitations [Unknown]
  - Myalgia [Unknown]
  - Pain [Not Recovered/Not Resolved]
  - Drug ineffective for unapproved indication [Unknown]
  - Dyspnoea [Unknown]

NARRATIVE: CASE EVENT DATE: 201801
